FAERS Safety Report 9496996 (Version 1)
Quarter: 2013Q3

REPORT INFORMATION
  Report Type: Spontaneous
  Country: PT (occurrence: None)
  Receive Date: 20130830
  Receipt Date: 20130830
  Transmission Date: 20140515
  Serious: Yes (Other)
  Sender: FDA-Public Use
  Company Number: SYM-2013-08397

PATIENT
  Age: 19 Year
  Sex: Female

DRUGS (1)
  1. MINOCYCLINE [Suspect]
     Indication: ACNE
     Dosage: DISCONTINUED

REACTIONS (3)
  - Leukocytosis [None]
  - Neutrophilia [None]
  - Type 2 lepra reaction [None]
